FAERS Safety Report 9657781 (Version 1)
Quarter: 2013Q4

REPORT INFORMATION
  Report Type: Spontaneous
  Country: US (occurrence: US)
  Receive Date: 20131030
  Receipt Date: 20131030
  Transmission Date: 20140711
  Serious: Yes (Other)
  Sender: FDA-Public Use
  Company Number: CHPA2013US016348

PATIENT
  Age: 69 Year
  Sex: Female

DRUGS (2)
  1. EXCEDRIN EXTRA STRENGTH [Suspect]
     Indication: BACK PAIN
     Dosage: 2 TO 4 DF, QD
     Route: 048
     Dates: start: 2009, end: 2010
  2. THYROXINE [Concomitant]

REACTIONS (5)
  - Abdominal adhesions [Recovered/Resolved]
  - Gastric ulcer [Recovered/Resolved]
  - Fatigue [Recovered/Resolved]
  - Full blood count decreased [Recovered/Resolved]
  - Incorrect drug administration duration [Unknown]
